FAERS Safety Report 8233312-4 (Version None)
Quarter: 2012Q1

REPORT INFORMATION
  Report Type: 
  Country: None (occurrence: None)
  Receive Date: 20120323
  Receipt Date: 20120323
  Transmission Date: 20120608
  Serious: Yes (Disabling, Other)
  Sender: FDA-Public Use
  Company Number: None

PATIENT
  Age: 41 Year
  Sex: Male
  Weight: 75.7507 kg

DRUGS (5)
  1. RISPERIDONE [Concomitant]
  2. AMANTADINE HCL [Suspect]
     Indication: DRUG THERAPY
     Dosage: 100 MG 3 DAILY 047
     Dates: start: 20081130
  3. MAGNESIUM [Concomitant]
  4. VITAMIN D [Concomitant]
  5. CENTRUM [Concomitant]

REACTIONS (3)
  - HEADACHE [None]
  - AMNESIA [None]
  - CONFUSIONAL STATE [None]
